FAERS Safety Report 6295032-5 (Version None)
Quarter: 2009Q3

REPORT INFORMATION
  Report Type: 
  Country: None (occurrence: None)
  Receive Date: 20090803
  Receipt Date: 20090722
  Transmission Date: 20100115
  Serious: Yes (Death, Hospitalization)
  Sender: FDA-Public Use
  Company Number: FR-SOLVAY-00209004032

PATIENT
  Age: 79 Year
  Sex: Female

DRUGS (10)
  1. COVERSYL 4 MG [Interacting]
     Indication: DRUG USE FOR UNKNOWN INDICATION
     Dosage: DAILY DOSE: 8 MILLIGRAM(S)
     Route: 048
     Dates: start: 20090407, end: 20090605
  2. CARBAMAZEPINE [Concomitant]
     Indication: DRUG USE FOR UNKNOWN INDICATION
     Dosage: 04-JUN-2009
     Route: 065
     Dates: end: 20090604
  3. TERALITHE [Interacting]
     Indication: DRUG USE FOR UNKNOWN INDICATION
     Dosage: DAILY DOSE: 600 MILLIGRAM(S)
     Route: 048
     Dates: end: 20090604
  4. TOFRANIL [Concomitant]
     Indication: DRUG USE FOR UNKNOWN INDICATION
     Dosage: DAILY DOSE: 50 MILLIGRAM(S)
     Route: 065
     Dates: end: 20090604
  5. ALDACTAZINE [Interacting]
     Indication: DRUG USE FOR UNKNOWN INDICATION
     Dosage: DAILY DOSE: 1 DOSAGE FORM
     Route: 048
     Dates: start: 20090407, end: 20090604
  6. TAHOR [Concomitant]
     Indication: DRUG USE FOR UNKNOWN INDICATION
     Dosage: DAILY DOSE: 10 MILLIGRAM(S)
     Route: 065
     Dates: start: 20090407, end: 20090606
  7. AMLODIPINE [Concomitant]
     Indication: DRUG USE FOR UNKNOWN INDICATION
     Dosage: DAILY DOSE: 10 MILLIGRAM(S)
     Route: 065
     Dates: start: 20090407, end: 20090606
  8. TERCIAN [Suspect]
     Indication: CONFUSIONAL STATE
     Dosage: DAILY DOSE:  UNKNOWN
     Route: 065
     Dates: start: 20090521, end: 20090522
  9. MEDIATENSYL [Concomitant]
     Indication: DRUG USE FOR UNKNOWN INDICATION
     Dosage: DAILY DOSE: 120 MILLIGRAM(S)
     Route: 065
     Dates: start: 20090407, end: 20090518
  10. BISOPROLOL [Concomitant]
     Indication: DRUG USE FOR UNKNOWN INDICATION
     Dosage: DAILY DOSE: 10 MILLIGRAM(S)
     Route: 065
     Dates: start: 20090407, end: 20090527

REACTIONS (7)
  - COMA [None]
  - CONFUSIONAL STATE [None]
  - DRUG INTERACTION [None]
  - FEMORAL NECK FRACTURE [None]
  - OVERDOSE [None]
  - PNEUMONIA ASPIRATION [None]
  - RENAL FAILURE ACUTE [None]
